FAERS Safety Report 25042863 (Version 1)
Quarter: 2025Q1

REPORT INFORMATION
  Report Type: Spontaneous
  Country: IT (occurrence: IT)
  Receive Date: 20250305
  Receipt Date: 20250305
  Transmission Date: 20250409
  Serious: Yes (Other)
  Sender: SHIONOGI
  Company Number: IT-shionogi-202500002325

PATIENT
  Age: 51 Year
  Sex: Male

DRUGS (5)
  1. CEFIDEROCOL [Suspect]
     Active Substance: CEFIDEROCOL
     Indication: Pneumonia
  2. CEFIDEROCOL [Suspect]
     Active Substance: CEFIDEROCOL
     Indication: Pneumonia klebsiella
     Dosage: ON DAY 53
  3. CEFIDEROCOL [Suspect]
     Active Substance: CEFIDEROCOL
     Indication: Septic shock
     Dosage: ON DAY 55
  4. CEFIDEROCOL [Suspect]
     Active Substance: CEFIDEROCOL
     Dosage: ON DAY 60
  5. CEFIDEROCOL [Suspect]
     Active Substance: CEFIDEROCOL
     Dosage: ON DAY 63

REACTIONS (4)
  - Pathogen resistance [Unknown]
  - Drug resistance [Unknown]
  - Incorrect product administration duration [Unknown]
  - Prescribed overdose [Unknown]
